FAERS Safety Report 7619166-5 (Version None)
Quarter: 2011Q3

REPORT INFORMATION
  Report Type: 
  Country: None (occurrence: None)
  Receive Date: 20110718
  Receipt Date: 20110706
  Transmission Date: 20111222
  Serious: Yes (Disabling, Other)
  Sender: FDA-Public Use
  Company Number: PHEH2009US16962

PATIENT
  Sex: Female

DRUGS (16)
  1. THALIDOMIDE [Concomitant]
     Dosage: 50 MG, DAILY
  2. FENTANYL-100 [Concomitant]
  3. METHYLPREDNISOLONE [Concomitant]
  4. OXYCODONE HCL [Concomitant]
     Route: 048
  5. NAPROXEN [Concomitant]
     Route: 048
  6. PENICILLIN VK [Concomitant]
     Route: 048
  7. CHLORHEXIDINE GLUCONATE [Concomitant]
  8. ALKERAN [Concomitant]
     Dosage: 6 MG, DAILY FOR 7 DAYS EVERY 6 WEEKS
  9. AMLODIPINE BESYLATE [Concomitant]
     Dosage: 5 MG, DAILY
  10. SENNACOTS [Concomitant]
  11. IBUPROFEN [Concomitant]
  12. TRAMADOL HCL [Concomitant]
     Route: 048
  13. HYDROCODONE [Concomitant]
     Route: 048
  14. ASPIRIN [Concomitant]
     Dosage: 81 MG, PER DAY
  15. ZOMETA [Suspect]
  16. AMOX-CLAV [Concomitant]
     Route: 048

REACTIONS (9)
  - PAIN [None]
  - MULTIPLE MYELOMA [None]
  - PAIN IN JAW [None]
  - MONOCLONAL GAMMOPATHY [None]
  - ANXIETY [None]
  - ANHEDONIA [None]
  - INJURY [None]
  - OSTEONECROSIS OF JAW [None]
  - ANAEMIA [None]
